FAERS Safety Report 16949570 (Version 2)
Quarter: 2019Q4

REPORT INFORMATION
  Report Type: Spontaneous
  Country: DE (occurrence: DE)
  Receive Date: 20191023
  Receipt Date: 20191225
  Transmission Date: 20200122
  Serious: Yes (Death, Life-Threatening, Hospitalization, Other)
  Sender: FDA-Public Use
  Company Number: DE-AUROBINDO-AUR-APL-2019-067509

PATIENT
  Age: 83 Year
  Sex: Male

DRUGS (33)
  1. FLUOROURACIL. [Suspect]
     Active Substance: FLUOROURACIL
     Indication: PANCREATIC CARCINOMA METASTATIC
     Dosage: 808 MILLIGRAM, CYCLICAL
     Route: 040
     Dates: start: 20180601, end: 20180601
  2. FLUOROURACIL. [Suspect]
     Active Substance: FLUOROURACIL
     Dosage: 4848 MILLIGRAM, CYCLICAL
     Route: 042
     Dates: start: 20180609, end: 20180609
  3. DEXAMETHASONE. [Concomitant]
     Active Substance: DEXAMETHASONE
     Indication: PRODUCT USED FOR UNKNOWN INDICATION
     Dosage: UNK
     Route: 065
     Dates: start: 20180607
  4. NORSPAN [Concomitant]
     Active Substance: BUPRENORPHINE
     Indication: PAIN
     Dosage: UNK
     Route: 065
     Dates: start: 20180605
  5. AMPHO-MORONAL [Concomitant]
     Active Substance: AMPHOTERICIN B
     Indication: MUCOSAL INFLAMMATION
     Dosage: UNK
     Route: 065
  6. JONOSTERIL [Concomitant]
     Indication: PRODUCT USED FOR UNKNOWN INDICATION
     Dosage: UNK
     Route: 065
     Dates: start: 20180609
  7. NOVALGIN [Concomitant]
     Indication: PANCREATIC CARCINOMA METASTATIC
     Dosage: UNK
     Route: 065
     Dates: start: 20180525
  8. FLUOROURACIL. [Suspect]
     Active Substance: FLUOROURACIL
     Dosage: 4848 MILLIGRAM, CYCLICAL
     Route: 042
     Dates: start: 20180601, end: 20180601
  9. LAXANS [Concomitant]
     Indication: CONSTIPATION PROPHYLAXIS
     Dosage: UNK
     Route: 065
     Dates: start: 20180527
  10. MCP ABZ [Concomitant]
     Indication: NAUSEA
     Dosage: UNK
     Route: 065
     Dates: start: 20180530
  11. GLANDOMED [Concomitant]
     Indication: PRODUCT USED FOR UNKNOWN INDICATION
     Dosage: UNK
     Route: 065
     Dates: start: 20180611
  12. FLUMAZENIL. [Concomitant]
     Active Substance: FLUMAZENIL
     Indication: ALTERED STATE OF CONSCIOUSNESS
     Dosage: UNK
     Route: 065
     Dates: start: 20180608
  13. METOPROLOL. [Concomitant]
     Active Substance: METOPROLOL
     Indication: HYPERTENSION
     Dosage: UNK
     Route: 065
  14. OXALIPLATIN. [Suspect]
     Active Substance: OXALIPLATIN
     Indication: PANCREATIC CARCINOMA METASTATIC
     Dosage: 172 MILLIGRAM, CYCLICAL
     Route: 042
     Dates: start: 20180601, end: 20180601
  15. ONDANSETRON [Concomitant]
     Active Substance: ONDANSETRON
     Indication: NAUSEA
     Dosage: UNK
     Route: 065
     Dates: start: 20180607
  16. HALOPERIDOL. [Concomitant]
     Active Substance: HALOPERIDOL
     Indication: AGITATION
     Dosage: UNK
     Route: 065
     Dates: start: 20180606
  17. NUTRIFLEX LIPID [Concomitant]
     Active Substance: AMINO ACIDS\DEXTROSE\ELECTROLYTES NOS\SOYBEAN OIL
     Indication: PRODUCT USED FOR UNKNOWN INDICATION
     Dosage: UNK
     Route: 065
     Dates: start: 20180604
  18. MORPHINE [Concomitant]
     Active Substance: MORPHINE
     Indication: PANCREATIC CARCINOMA METASTATIC
     Dosage: UNK
     Route: 065
     Dates: start: 20180527
  19. BUPRENORPHINE. [Concomitant]
     Active Substance: BUPRENORPHINE
     Indication: PRODUCT USED FOR UNKNOWN INDICATION
     Dosage: UNK
     Route: 065
     Dates: start: 20180606
  20. TORASEMID [Concomitant]
     Active Substance: TORSEMIDE
     Indication: CARDIAC FAILURE
     Dosage: UNK
     Route: 065
     Dates: start: 20180528
  21. AMPICILLIN [Concomitant]
     Active Substance: AMPICILLIN
     Indication: PRODUCT USED FOR UNKNOWN INDICATION
     Dosage: UNK
     Route: 065
     Dates: start: 20180608
  22. PANTOPRAZOLE [Concomitant]
     Active Substance: PANTOPRAZOLE
     Indication: PRODUCT USED FOR UNKNOWN INDICATION
     Dosage: UNK
     Route: 065
     Dates: start: 20180115
  23. NOVAMINSULFON [Concomitant]
     Active Substance: METAMIZOLE
     Indication: PAIN
     Dosage: UNK
     Route: 065
     Dates: start: 20180115
  24. SULBACTAM [Concomitant]
     Active Substance: SULBACTAM
     Indication: PRODUCT USED FOR UNKNOWN INDICATION
     Dosage: UNK
     Route: 065
     Dates: start: 20180608
  25. DIMENHYDRINATE. [Concomitant]
     Active Substance: DIMENHYDRINATE
     Indication: NAUSEA
     Dosage: UNK
     Route: 065
     Dates: start: 20180602
  26. SPIRONOLACTONE. [Concomitant]
     Active Substance: SPIRONOLACTONE
     Indication: CARDIAC FAILURE
     Dosage: UNK
     Route: 065
     Dates: start: 20180518
  27. SPIRONOLACTONE. [Concomitant]
     Active Substance: SPIRONOLACTONE
     Indication: ASCITES
     Dosage: UNK
     Route: 065
     Dates: start: 20180530
  28. MONO EMBOLEX [Concomitant]
     Active Substance: CERTOPARIN SODIUM
     Indication: THROMBOSIS PROPHYLAXIS
     Dosage: UNK
     Route: 065
     Dates: start: 20180518
  29. ADDAVEN [Concomitant]
     Active Substance: ELECTROLYTES NOS\MINERALS
     Indication: PRODUCT USED FOR UNKNOWN INDICATION
     Dosage: UNK
     Route: 065
     Dates: start: 20180603
  30. MIRTAZAPIN [Concomitant]
     Active Substance: MIRTAZAPINE
     Indication: AGITATION
     Dosage: UNK
     Route: 065
     Dates: start: 20180603
  31. FLUOROURACIL. [Suspect]
     Active Substance: FLUOROURACIL
     Dosage: 808 MILLIGRAM, CYCLICAL
     Route: 040
     Dates: start: 20180603, end: 20180603
  32. LEUCOVORINE [Suspect]
     Active Substance: LEUCOVORIN
     Indication: PANCREATIC CARCINOMA METASTATIC
     Dosage: 808 MILLIGRAM, CYCLICAL
     Route: 042
     Dates: start: 20180601, end: 20180601
  33. SALVIATHYMOL [Concomitant]
     Indication: PRODUCT USED FOR UNKNOWN INDICATION
     Dosage: UNK
     Route: 065
     Dates: start: 20180611

REACTIONS (3)
  - Condition aggravated [Not Recovered/Not Resolved]
  - Stomatitis [Not Recovered/Not Resolved]
  - Sepsis [Fatal]

NARRATIVE: CASE EVENT DATE: 20180610
